FAERS Safety Report 20786336 (Version 1)
Quarter: 2022Q2

REPORT INFORMATION
  Report Type: Spontaneous
  Country: US (occurrence: None)
  Receive Date: 20220504
  Receipt Date: 20220504
  Transmission Date: 20220721
  Serious: No
  Sender: FDA-Public Use
  Company Number: US-ROCHE-3000154

PATIENT
  Sex: Female
  Weight: 72.640 kg

DRUGS (1)
  1. OCREVUS [Suspect]
     Active Substance: OCRELIZUMAB
     Indication: Relapsing-remitting multiple sclerosis
     Route: 042
     Dates: start: 202006

REACTIONS (15)
  - Alopecia [Unknown]
  - Hair growth abnormal [Unknown]
  - Cognitive disorder [Unknown]
  - Fatigue [Unknown]
  - Balance disorder [Unknown]
  - Therapeutic response shortened [Unknown]
  - Alopecia [Unknown]
  - Asthenia [Unknown]
  - Asthenia [Unknown]
  - Gait disturbance [Unknown]
  - Asthenia [Unknown]
  - Gait disturbance [Unknown]
  - Asthenia [Unknown]
  - Therapeutic response shortened [Unknown]
  - Feeling abnormal [Unknown]

NARRATIVE: CASE EVENT DATE: 20210101
